FAERS Safety Report 12408252 (Version 1)
Quarter: 2016Q2

REPORT INFORMATION
  Report Type: Spontaneous
  Country: HU (occurrence: HU)
  Receive Date: 20160526
  Receipt Date: 20160526
  Transmission Date: 20160815
  Serious: Yes (Other)
  Sender: FDA-Public Use
  Company Number: HU-TEVA-662458ACC

PATIENT
  Age: 63 Year
  Sex: Female

DRUGS (7)
  1. ATORVASTATIN KRKA [Concomitant]
     Active Substance: ATORVASTATIN
     Dosage: 40 MILLIGRAM DAILY;
  2. EGITROMB [Concomitant]
     Dosage: 75 MILLIGRAM DAILY;
  3. TRENTAL [Concomitant]
     Active Substance: PENTOXIFYLLINE
     Dosage: 800 MILLIGRAM DAILY;
  4. COVEREX-AS KOMB [Concomitant]
     Dosage: .5 DOSAGE FORMS DAILY; 1DF= PERINDOPRIL:5MG, INDAPAMIDE: 1.25MG; DAILY DOSE: 0.5DOSAGE FORMS
  5. MILURIT [Concomitant]
     Active Substance: ALLOPURINOL
     Dosage: 300 MILLIGRAM DAILY;
  6. CILOSTAZOL-TEVA [Suspect]
     Active Substance: CILOSTAZOL
     Indication: PRODUCT USED FOR UNKNOWN INDICATION
     Route: 048
     Dates: start: 201604, end: 201604
  7. CONTRAMAL [Concomitant]
     Active Substance: TRAMADOL HYDROCHLORIDE
     Dosage: 50 TO 100 MG ONCE DAILY

REACTIONS (6)
  - Abdominal pain [Recovered/Resolved]
  - Blood pressure increased [Recovered/Resolved]
  - Fear of death [Recovered/Resolved]
  - Nausea [Recovered/Resolved]
  - Headache [Recovered/Resolved]
  - Dyspnoea [Recovered/Resolved]

NARRATIVE: CASE EVENT DATE: 201604
